FAERS Safety Report 9174294 (Version 2)
Quarter: 2014Q2

REPORT INFORMATION
  Report Type: Report from Study
  Country: JP (occurrence: JP)
  Receive Date: 20130320
  Receipt Date: 20140501
  Transmission Date: 20141212
  Serious: Yes (Other)
  Sender: FDA-Public Use
  Company Number: PHHY2013JP026309

PATIENT
  Age: 24 Year
  Sex: Male

DRUGS (17)
  1. LEPONEX / CLOZARIL [Suspect]
     Indication: SCHIZOPHRENIA, DISORGANISED TYPE
     Dosage: 12.5 MG, DAILY
     Route: 048
     Dates: start: 20110914, end: 20110914
  2. LEPONEX / CLOZARIL [Suspect]
     Dosage: 25 MG, DAILY
     Route: 048
     Dates: start: 20110915, end: 20110917
  3. LEPONEX / CLOZARIL [Suspect]
     Dosage: 50 MG, DAILY
     Route: 048
     Dates: start: 20110918, end: 20110920
  4. LEPONEX / CLOZARIL [Suspect]
     Dosage: 75 MG, DAILY
     Route: 048
     Dates: start: 20110921, end: 20110924
  5. LEPONEX / CLOZARIL [Suspect]
     Dosage: 100 MG, DAILY
     Route: 048
     Dates: start: 20110925, end: 20110927
  6. LEPONEX / CLOZARIL [Suspect]
     Dosage: 125 MG, DAILY
     Route: 048
     Dates: start: 20110928, end: 20111001
  7. LEPONEX / CLOZARIL [Suspect]
     Dosage: 150 MG, DAILY
     Route: 048
     Dates: start: 20111002, end: 20111008
  8. LEPONEX / CLOZARIL [Suspect]
     Dosage: 175 MG, DAILY
     Route: 048
     Dates: start: 20111009, end: 20111011
  9. LEPONEX / CLOZARIL [Suspect]
     Dosage: 200 MG, DAILY
     Route: 048
     Dates: start: 20111012, end: 20111018
  10. LEPONEX / CLOZARIL [Suspect]
     Dosage: 250 MG, DAILY
     Route: 048
     Dates: start: 20111019, end: 20111025
  11. LEPONEX / CLOZARIL [Suspect]
     Dosage: 300 MG, DAILY
     Route: 048
     Dates: start: 20111026, end: 20120301
  12. LEPONEX / CLOZARIL [Suspect]
     Dosage: 400 MG, DAILY
     Route: 048
     Dates: start: 20120302
  13. LIMAS [Concomitant]
     Indication: SCHIZOPHRENIA, DISORGANISED TYPE
     Dosage: 600 MG, UNK
     Route: 048
     Dates: start: 20110904
  14. HALCION [Concomitant]
     Indication: SCHIZOPHRENIA, DISORGANISED TYPE
     Dosage: 0.25 MG, UNK
     Route: 048
     Dates: start: 20110914
  15. AKIRIDEN [Concomitant]
     Dosage: 3 MG, UNK
     Route: 048
     Dates: end: 20110927
  16. DEPAKENE [Concomitant]
     Indication: SCHIZOPHRENIA, DISORGANISED TYPE
     Dosage: 800 MG, UNK
     Route: 048
     Dates: end: 20110914
  17. DORAL [Concomitant]
     Indication: SCHIZOPHRENIA, DISORGANISED TYPE
     Dosage: 20 MG, UNK
     Route: 048
     Dates: start: 20110914, end: 20110920

REACTIONS (2)
  - Heart rate increased [Unknown]
  - Hypertension [Not Recovered/Not Resolved]
